FAERS Safety Report 8901901 (Version 1)
Quarter: 2012Q4

REPORT INFORMATION
  Report Type: Spontaneous
  Country: US (occurrence: None)
  Receive Date: 20121109
  Receipt Date: 20121109
  Transmission Date: 20130627
  Serious: Yes (Death, Hospitalization)
  Sender: FDA-Public Use
  Company Number: None

PATIENT
  Sex: Male
  Weight: 89.4 kg

DRUGS (2)
  1. CISPLATIN [Suspect]
     Dates: end: 20091117
  2. PEMETREXED [Suspect]
     Dates: end: 20091117

REACTIONS (3)
  - Cardiac arrest [None]
  - Pulmonary embolism [None]
  - Excoriation [None]
